FAERS Safety Report 10223775 (Version 2)
Quarter: 2014Q2

REPORT INFORMATION
  Report Type: Spontaneous
  Country: CN (occurrence: CN)
  Receive Date: 20140609
  Receipt Date: 20140610
  Transmission Date: 20141212
  Serious: Yes (Other)
  Sender: FDA-Public Use
  Company Number: CN-009507513-1406CHN000346

PATIENT
  Age: 76 Year
  Sex: Male

DRUGS (8)
  1. PROSCAR [Suspect]
     Indication: BENIGN PROSTATIC HYPERPLASIA
     Dosage: 5 MG, QD
     Route: 048
     Dates: start: 2012, end: 2012
  2. PROSCAR [Suspect]
     Dosage: 5 MG, QD
     Route: 048
     Dates: start: 201310
  3. TERAZOSIN HYDROCHLORIDE [Suspect]
     Indication: BENIGN PROSTATIC HYPERPLASIA
     Dosage: 1 TABLET DAILY
     Route: 048
     Dates: start: 2012, end: 2012
  4. HA LE JIAO NANG [Suspect]
     Indication: BENIGN PROSTATIC HYPERPLASIA
     Dosage: 1 TABLET AT NIGHT
     Route: 048
     Dates: start: 201310, end: 201403
  5. LIPITOR [Concomitant]
     Indication: HYPERLIPIDAEMIA
     Dosage: 1 TABLET DAILY
     Route: 048
  6. ASPIRIN [Concomitant]
     Indication: CORONARY ARTERY DISEASE
     Dosage: 1 TABLET DAILY
     Route: 048
  7. VASOREL [Concomitant]
     Indication: CORONARY ARTERY DISEASE
     Dosage: 3 TABLETS DAILY, ONE IN THE MORNING, ONE AT NOON AND ONE AT NIGHT
     Route: 048
  8. PLAVIX [Concomitant]
     Indication: CORONARY ARTERY DISEASE
     Dosage: 1 TABLET DAILY
     Route: 048

REACTIONS (7)
  - Carotid artery stent insertion [Unknown]
  - Dizziness [Recovered/Resolved]
  - Nausea [Recovered/Resolved]
  - Headache [Recovered/Resolved]
  - Inappropriate schedule of drug administration [Unknown]
  - Drug ineffective [Not Recovered/Not Resolved]
  - Libido decreased [Not Recovered/Not Resolved]
